FAERS Safety Report 13789552 (Version 1)
Quarter: 2017Q3

REPORT INFORMATION
  Report Type: Spontaneous
  Country: AR (occurrence: AR)
  Receive Date: 20170725
  Receipt Date: 20170725
  Transmission Date: 20171127
  Serious: Yes (Other)
  Sender: FDA-Public Use
  Company Number: AR-NODEN PHARMA DAC-NOD-2017-000084

PATIENT
  Age: 65 Year
  Sex: Male

DRUGS (2)
  1. RASILEZ D [Suspect]
     Active Substance: ALISKIREN\HYDROCHLOROTHIAZIDE
     Indication: HYPERTENSION
     Dosage: 1 DF (ALISKIREN 300 MG/ HYDROCHLOROTHIAZIDE 12.5 MG), QD
     Route: 065
     Dates: start: 201005
  2. DIOVAN [Suspect]
     Active Substance: VALSARTAN
     Indication: HYPERTENSION
     Dosage: UNK
     Route: 065
     Dates: end: 201005

REACTIONS (2)
  - Blood pressure increased [Recovered/Resolved]
  - Cholelithiasis [Not Recovered/Not Resolved]

NARRATIVE: CASE EVENT DATE: 201706
